FAERS Safety Report 8308442-9 (Version None)
Quarter: 2012Q1

REPORT INFORMATION
  Report Type: 
  Country: None (occurrence: None)
  Receive Date: 20120327
  Receipt Date: 20091106
  Transmission Date: 20120608
  Serious: Yes (Other)
  Sender: FDA-Public Use
  Company Number: PHEH2009US15436

PATIENT
  Sex: Male

DRUGS (4)
  1. GLEEVEC [Suspect]
     Indication: ACUTE MYELOID LEUKAEMIA
     Dosage: 400 MG, QD, ORAL
     Route: 048
     Dates: start: 20090401
  2. KETOCONAZOLE [Suspect]
  3. SYNTHROID [Concomitant]
  4. BETAMETHASONE [Concomitant]

REACTIONS (7)
  - PSORIASIS [None]
  - RASH [None]
  - RASH PRURITIC [None]
  - STOMATITIS [None]
  - RASH ERYTHEMATOUS [None]
  - BIOPSY [None]
  - EXFOLIATIVE RASH [None]
